FAERS Safety Report 18760900 (Version 1)
Quarter: 2021Q1

REPORT INFORMATION
  Report Type: Spontaneous
  Country: US (occurrence: US)
  Receive Date: 20210115
  Receipt Date: 20210115
  Transmission Date: 20210419
  Serious: Yes (Hospitalization)
  Sender: FDA-Public Use
  Company Number: None

PATIENT
  Sex: Male

DRUGS (7)
  1. IMATINIB MES 100MG TAB [Suspect]
     Active Substance: IMATINIB MESYLATE
     Indication: GASTROINTESTINAL STROMAL TUMOUR
     Route: 048
     Dates: start: 20180322
  2. BUSPIRONE [Concomitant]
     Active Substance: BUSPIRONE HYDROCHLORIDE
  3. CETIRIZINE [Concomitant]
     Active Substance: CETIRIZINE HYDROCHLORIDE
  4. SERTRALINE [Concomitant]
     Active Substance: SERTRALINE HYDROCHLORIDE
  5. GUANFACINE. [Concomitant]
     Active Substance: GUANFACINE
  6. MULTIVITAMIN [Concomitant]
     Active Substance: VITAMINS
  7. MELATONIN [Concomitant]
     Active Substance: MELATONIN

REACTIONS (2)
  - Product communication issue [None]
  - Incorrect dose administered [None]
